FAERS Safety Report 6347511-X (Version None)
Quarter: 2009Q3

REPORT INFORMATION
  Report Type: 
  Country: None (occurrence: None)
  Receive Date: 20090908
  Receipt Date: 20090908
  Transmission Date: 20100115
  Serious: Yes (Life-Threatening, Hospitalization)
  Sender: FDA-Public Use
  Company Number: None

PATIENT
  Age: 9 Year
  Sex: Male

DRUGS (2)
  1. VALPROIC ACID 500 MG UNKNOWN [Suspect]
     Indication: ATTENTION DEFICIT/HYPERACTIVITY DISORDER
     Dosage: 500 MG DAILY PO
     Route: 048
     Dates: start: 20090720, end: 20090824
  2. VALPROIC ACID 500 MG UNKNOWN [Suspect]
     Indication: NEGATIVISM
     Dosage: 500 MG DAILY PO
     Route: 048
     Dates: start: 20090720, end: 20090824

REACTIONS (9)
  - ACUTE HEPATIC FAILURE [None]
  - DIALYSIS [None]
  - ENCEPHALOPATHY [None]
  - GASTROENTERITIS [None]
  - INTERNATIONAL NORMALISED RATIO INCREASED [None]
  - INTRACRANIAL PRESSURE INCREASED [None]
  - LIVER TRANSPLANT [None]
  - RENAL FAILURE [None]
  - RESPIRATORY DISORDER [None]
